FAERS Safety Report 4896360-8 (Version None)
Quarter: 2006Q1

REPORT INFORMATION
  Report Type: 
  Country: None (occurrence: None)
  Receive Date: 20060126
  Receipt Date: 20060120
  Transmission Date: 20060701
  Serious: Yes (Death, Other)
  Sender: FDA-Public Use
  Company Number: 2006-00103

PATIENT
  Age: 32 Year
  Sex: Female
  Weight: 83 kg

DRUGS (12)
  1. VELCADE [Suspect]
     Indication: ACUTE MYELOID LEUKAEMIA
     Dosage: 1.00 MG/M2, 2/WEEK, INTRAVENOUS
     Route: 042
     Dates: start: 20060110, end: 20060116
  2. CYTARABINE [Suspect]
     Indication: ACUTE MYELOID LEUKAEMIA
     Dosage: 1000.00 MG/M2
     Dates: start: 20060110
  3. DAUNORUBICIN HCL [Suspect]
     Indication: ACUTE MYELOID LEUKAEMIA
     Dosage: 60.00 MG/M2
     Dates: start: 20060110
  4. COLISTIN SULFATE (COLISTIN SULFATE) [Concomitant]
  5. ALLOPURINOL [Concomitant]
  6. HEPARIN [Concomitant]
  7. CIPROFLOXACIN [Concomitant]
  8. FLUCONAZOLE [Concomitant]
  9. LYNESTRENOL (LYNESTRENOL) [Concomitant]
  10. METHYLCELLULOSE (METHYLCELLULOSE) [Concomitant]
  11. SODIUM FLUORIDE (SODIUM FLUORIDE) [Concomitant]
  12. TRAMADOL HCL [Concomitant]

REACTIONS (18)
  - ACTIVATED PARTIAL THROMBOPLASTIN TIME PROLONGED [None]
  - ACUTE PULMONARY OEDEMA [None]
  - ACUTE RESPIRATORY DISTRESS SYNDROME [None]
  - ACUTE RESPIRATORY FAILURE [None]
  - BLOOD ALKALINE PHOSPHATASE INCREASED [None]
  - BLOOD CALCIUM DECREASED [None]
  - BLOOD LACTATE DEHYDROGENASE INCREASED [None]
  - BLOOD MAGNESIUM DECREASED [None]
  - CAPILLARY LEAK SYNDROME [None]
  - CHEST PAIN [None]
  - DRUG INEFFECTIVE [None]
  - FATIGUE [None]
  - PLATELET COUNT DECREASED [None]
  - PLEURAL EFFUSION [None]
  - PROTHROMBIN TIME PROLONGED [None]
  - PULMONARY TOXICITY [None]
  - PYREXIA [None]
  - SKIN TOXICITY [None]
